FAERS Safety Report 21535805 (Version 1)
Quarter: 2022Q4

REPORT INFORMATION
  Report Type: Spontaneous
  Country: US (occurrence: US)
  Receive Date: 20221101
  Receipt Date: 20221101
  Transmission Date: 20230113
  Serious: Yes (Other)
  Sender: FDA-Public Use
  Company Number: US-BoehringerIngelheim-2022-BI-199840

PATIENT
  Age: 68 Year
  Sex: Male

DRUGS (1)
  1. COMBIVENT RESPIMAT [Suspect]
     Active Substance: ALBUTEROL SULFATE\IPRATROPIUM BROMIDE
     Indication: Drug therapy
     Dosage: 4-5 PUFFS PER DAY AS NEEDED
     Dates: start: 2015

REACTIONS (2)
  - Lung carcinoma cell type unspecified recurrent [Recovered/Resolved]
  - Off label use [Unknown]

NARRATIVE: CASE EVENT DATE: 20220101
